FAERS Safety Report 26113920 (Version 1)
Quarter: 2025Q4

REPORT INFORMATION
  Report Type: Spontaneous
  Country: EU (occurrence: EU)
  Receive Date: 20251202
  Receipt Date: 20251202
  Transmission Date: 20260118
  Serious: Yes (Hospitalization)
  Sender: PFIZER
  Company Number: EU-PFIZER INC-PV202500140781

PATIENT
  Age: 12 Year
  Sex: Female
  Weight: 36 kg

DRUGS (3)
  1. INFLIXIMAB [Suspect]
     Active Substance: INFLIXIMAB
     Indication: Dermatomyositis
     Dosage: 100 MG
     Route: 042
     Dates: start: 20221128, end: 20240701
  2. CALCIUM PHOSPHATE\FOLIC ACID [Concomitant]
     Active Substance: CALCIUM PHOSPHATE\FOLIC ACID
     Indication: Dermatomyositis
     Dosage: UNK
     Dates: start: 202204
  3. METHOTREXATE [Concomitant]
     Active Substance: METHOTREXATE
     Indication: Dermatomyositis
     Dosage: UNK
     Dates: start: 202204

REACTIONS (6)
  - Suffocation feeling [Recovered/Resolved]
  - Anaesthesia oral [Recovered/Resolved]
  - Oxygen saturation decreased [Recovered/Resolved]
  - Rash erythematous [Recovered/Resolved]
  - Cyanosis [Recovered/Resolved]
  - Off label use [Unknown]

NARRATIVE: CASE EVENT DATE: 20221128
